FAERS Safety Report 10457240 (Version 3)
Quarter: 2015Q1

REPORT INFORMATION
  Report Type: Spontaneous
  Country: JP (occurrence: JP)
  Receive Date: 20140916
  Receipt Date: 20150130
  Transmission Date: 20150720
  Serious: No
  Sender: FDA-Public Use
  Company Number: JP-BRISTOL-MYERS SQUIBB COMPANY-21341706

PATIENT
  Age: 59 Year
  Sex: Male

DRUGS (1)
  1. ERBITUX [Suspect]
     Active Substance: CETUXIMAB
     Indication: TONGUE NEOPLASM MALIGNANT STAGE UNSPECIFIED
     Dosage: UNK UNK, QWK
     Route: 041
     Dates: start: 201309, end: 201405

REACTIONS (3)
  - Hepatic function abnormal [Recovered/Resolved]
  - Blood creatine phosphokinase increased [Recovered/Resolved]
  - Alanine aminotransferase increased [Recovered/Resolved]

NARRATIVE: CASE EVENT DATE: 201405
